FAERS Safety Report 5664119-X (Version None)
Quarter: 2008Q1

REPORT INFORMATION
  Report Type: 
  Country: None (occurrence: None)
  Receive Date: 20080314
  Receipt Date: 20080305
  Transmission Date: 20080703
  Serious: Yes (Hospitalization)
  Sender: FDA-Public Use
  Company Number: US-ROCHE-551679

PATIENT
  Age: 57 Year
  Sex: Male

DRUGS (2)
  1. TAMIFLU [Suspect]
     Dosage: FORM: PILL, NEXT DOSAGE RECEIVED AFTER 36 HOURS
     Route: 065
     Dates: start: 20080225
  2. TAMIFLU [Suspect]
     Dosage: RECEIVED TWO DOSES.
     Route: 065

REACTIONS (3)
  - ANXIETY [None]
  - DELUSION [None]
  - SUICIDAL IDEATION [None]
